FAERS Safety Report 8963924 (Version 1)
Quarter: 2012Q4

REPORT INFORMATION
  Report Type: 
  Country: US (occurrence: US)
  Receive Date: 20121214
  Receipt Date: 20121214
  Transmission Date: 20130627
  Serious: Yes (Hospitalization)
  Sender: FDA-Public Use
  Company Number: US-BAYER-2012-129919

PATIENT
  Age: 35 Year
  Sex: Female
  Weight: 51.7 kg

DRUGS (6)
  1. OCELLA [Suspect]
     Dosage: UNK
  2. ZARAH [Suspect]
  3. CIPROFLOXACIN [Concomitant]
     Dosage: 500 mg, BID
     Route: 048
  4. PHENAZOPYRIDINE [Concomitant]
     Dosage: 200 mg, TID
     Route: 048
  5. TYLENOL [Concomitant]
     Dosage: 1000 mg, UNK
     Route: 048
  6. ENOXAPARIN [Concomitant]
     Dosage: 50 mg, UNK
     Route: 058

REACTIONS (1)
  - Deep vein thrombosis [None]
